FAERS Safety Report 17013304 (Version 1)
Quarter: 2019Q4

REPORT INFORMATION
  Report Type: Spontaneous
  Country: US (occurrence: US)
  Receive Date: 20191002
  Receipt Date: 20191002
  Transmission Date: 20200122
  Serious: No
  Sender: FDA-Public Use
  Company Number: None

PATIENT
  Age: 72 Year
  Sex: Female

DRUGS (1)
  1. ENBREL [Suspect]
     Active Substance: ETANERCEPT
     Indication: PSORIASIS
     Route: 058
     Dates: start: 200001, end: 201910

REACTIONS (5)
  - Hernia [None]
  - Gastrointestinal bacterial infection [None]
  - Gastric disorder [None]
  - Diarrhoea [None]
  - Crohn^s disease [None]

NARRATIVE: CASE EVENT DATE: 20191002
